FAERS Safety Report 10038969 (Version 1)
Quarter: 2014Q1

REPORT INFORMATION
  Report Type: Spontaneous
  Country: US (occurrence: US)
  Receive Date: 20140326
  Receipt Date: 20140326
  Transmission Date: 20141002
  Serious: Yes (Other)
  Sender: FDA-Public Use
  Company Number: US-LUNDBECK-DKLU1098479

PATIENT
  Sex: Female

DRUGS (1)
  1. ONFI [Suspect]
     Indication: EPILEPSY

REACTIONS (3)
  - Psychotic disorder [Unknown]
  - Suicidal ideation [Unknown]
  - Drug withdrawal convulsions [Unknown]
